FAERS Safety Report 24017416 (Version 2)
Quarter: 2024Q3

REPORT INFORMATION
  Report Type: Spontaneous
  Country: US (occurrence: US)
  Receive Date: 20240627
  Receipt Date: 20240926
  Transmission Date: 20241017
  Serious: Yes (Other)
  Sender: BRISTOL MYERS SQUIBB
  Company Number: US-BRISTOL-MYERS SQUIBB COMPANY-2024-100863

PATIENT
  Age: 74 Year
  Sex: Male

DRUGS (1)
  1. REBLOZYL [Suspect]
     Active Substance: LUSPATERCEPT-AAMT
     Indication: Product used for unknown indication
     Dosage: DOSE : UNKNOWN;     FREQ : ADIMINISTER 213MG SUBCUTANEOUSLY EVERY 3 WEEKS.
     Route: 058

REACTIONS (1)
  - Bone marrow disorder [Unknown]
